FAERS Safety Report 15713782 (Version 1)
Quarter: 2018Q4

REPORT INFORMATION
  Report Type: Spontaneous
  Country: US (occurrence: US)
  Receive Date: 20181129
  Receipt Date: 20181129
  Transmission Date: 20190205
  Serious: Yes (Hospitalization)
  Sender: FDA-Public Use
  Company Number: None

PATIENT
  Age: 83 Year
  Sex: Male

DRUGS (1)
  1. CABOMETYX [Suspect]
     Active Substance: CABOZANTINIB S-MALATE
     Indication: RENAL CANCER
     Route: 048
     Dates: start: 20181102, end: 20181118

REACTIONS (4)
  - Diarrhoea [None]
  - Condition aggravated [None]
  - Drug ineffective [None]
  - Dehydration [None]

NARRATIVE: CASE EVENT DATE: 20181102
